FAERS Safety Report 15491705 (Version 1)
Quarter: 2018Q4

REPORT INFORMATION
  Report Type: Spontaneous
  Country: US (occurrence: US)
  Receive Date: 20181012
  Receipt Date: 20181012
  Transmission Date: 20190205
  Serious: Yes (Other)
  Sender: FDA-Public Use
  Company Number: US-IPSEN BIOPHARMACEUTICALS, INC.-2018-15431

PATIENT
  Sex: Female

DRUGS (2)
  1. DYSPORT [Suspect]
     Active Substance: ABOBOTULINUMTOXINA
     Indication: PRODUCT USED FOR UNKNOWN INDICATION
     Dosage: 160 UNITS
     Route: 058
     Dates: start: 20180929, end: 20180929
  2. RESTYLANE [Suspect]
     Active Substance: HYALURONIC ACID
     Dosage: 3 ML INJECTED INTO LOWER LIP AND NASOBAIAL FOLD
     Dates: start: 20180918

REACTIONS (7)
  - Injection site mass [Not Recovered/Not Resolved]
  - Accidental overdose [Unknown]
  - Hypoaesthesia [Not Recovered/Not Resolved]
  - Lip disorder [Not Recovered/Not Resolved]
  - Medication error [Unknown]
  - Facial paralysis [Not Recovered/Not Resolved]
  - Pupillary reflex impaired [Not Recovered/Not Resolved]

NARRATIVE: CASE EVENT DATE: 20180920
